FAERS Safety Report 11168225 (Version 2)
Quarter: 2015Q3

REPORT INFORMATION
  Report Type: Spontaneous
  Country: US (occurrence: US)
  Receive Date: 20150605
  Receipt Date: 20150820
  Transmission Date: 20151125
  Serious: No
  Sender: FDA-Public Use
  Company Number: US-009507513-1506USA002952

PATIENT
  Age: 14 Year
  Sex: Female
  Weight: 72.1 kg

DRUGS (1)
  1. NEXPLANON [Suspect]
     Active Substance: ETONOGESTREL
     Indication: CONTRACEPTION
     Dosage: 1 ROD/YEARS
     Route: 059
     Dates: start: 20130813

REACTIONS (5)
  - Application site discomfort [Unknown]
  - Implant site pain [Unknown]
  - Device kink [Unknown]
  - Fall [Unknown]
  - Product use issue [Unknown]

NARRATIVE: CASE EVENT DATE: 20130813
